FAERS Safety Report 17258315 (Version 1)
Quarter: 2020Q1

REPORT INFORMATION
  Report Type: Spontaneous
  Country: US (occurrence: US)
  Receive Date: 20200110
  Receipt Date: 20200110
  Transmission Date: 20200409
  Serious: No
  Sender: FDA-Public Use
  Company Number: US-EPIC PHARMA LLC-2019EPC00007

PATIENT
  Age: 69 Year
  Sex: Female
  Weight: 74.83 kg

DRUGS (7)
  1. ASPIRIN. [Concomitant]
     Active Substance: ASPIRIN
     Dosage: UNK, 1X/DAY
  2. ESTRADIOL. [Suspect]
     Active Substance: ESTRADIOL
     Indication: OESTROGEN REPLACEMENT THERAPY
     Dosage: 0.5 MG, 1X/DAY
     Route: 048
     Dates: start: 20181225, end: 20190102
  3. HYDROCODONE [Concomitant]
     Active Substance: HYDROCODONE
     Dosage: UNK, AS NEEDED
  4. ALEVE [Concomitant]
     Active Substance: NAPROXEN SODIUM
     Dosage: ONCE IN A WHILE
  5. VALIUM [Concomitant]
     Active Substance: DIAZEPAM
     Dosage: UNK, AS NEEDED
  6. BIOTIN [Concomitant]
     Active Substance: BIOTIN
  7. COQ10 [Concomitant]
     Active Substance: UBIDECARENONE

REACTIONS (5)
  - Joint swelling [Recovering/Resolving]
  - Peripheral swelling [Recovering/Resolving]
  - Limb discomfort [Unknown]
  - Irritability [Unknown]
  - Skin tightness [Unknown]

NARRATIVE: CASE EVENT DATE: 201812
